FAERS Safety Report 6453795-X (Version None)
Quarter: 2009Q4

REPORT INFORMATION
  Report Type: 
  Country: None (occurrence: None)
  Receive Date: 20091124
  Receipt Date: 20091113
  Transmission Date: 20100525
  Serious: Yes (Life-Threatening, Hospitalization)
  Sender: FDA-Public Use
  Company Number: JP-BAYER-200913783BYL

PATIENT
  Age: 86 Year
  Sex: Female
  Weight: 40 kg

DRUGS (8)
  1. ASPIRIN [Suspect]
     Indication: CEREBROVASCULAR ACCIDENT PROPHYLAXIS
     Dosage: TOTAL DAILY DOSE: 100 MG  UNIT DOSE: 100 MG
     Route: 048
     Dates: start: 20030520, end: 20031120
  2. HALFDIGOXIN [Concomitant]
     Indication: DRUG USE FOR UNKNOWN INDICATION
     Dosage: TOTAL DAILY DOSE: 0.125 MG  UNIT DOSE: 0.125 MG
     Route: 048
  3. ADALAT CC [Concomitant]
     Indication: ESSENTIAL HYPERTENSION
     Dosage: TOTAL DAILY DOSE: 20 MG  UNIT DOSE: 20 MG
     Route: 048
  4. MAINTENANCE FLUID [Concomitant]
     Route: 041
  5. INCREMIN [Concomitant]
     Indication: DRUG USE FOR UNKNOWN INDICATION
     Route: 048
  6. TIMOPTIC [Concomitant]
     Indication: DRUG USE FOR UNKNOWN INDICATION
     Route: 031
  7. XALATAN [Concomitant]
     Indication: DRUG USE FOR UNKNOWN INDICATION
     Route: 031
  8. HYALEIN [Concomitant]
     Indication: DRUG USE FOR UNKNOWN INDICATION
     Route: 031

REACTIONS (5)
  - BLOOD ANTIDIURETIC HORMONE INCREASED [None]
  - COMA [None]
  - EPISTAXIS [None]
  - HYPONATRAEMIA [None]
  - PROCEDURAL VOMITING [None]
